FAERS Safety Report 4934182-X (Version None)
Quarter: 2006Q1

REPORT INFORMATION
  Report Type: 
  Country: None (occurrence: None)
  Receive Date: 20060303
  Receipt Date: 20060221
  Transmission Date: 20060701
  Serious: Yes (Life-Threatening, Other)
  Sender: FDA-Public Use
  Company Number: ES-2006-003942

PATIENT
  Age: 75 Year
  Sex: Female

DRUGS (1)
  1. IOPROMIDE(IOPROMIDE) INFUSION [Suspect]
     Indication: VENTRICULOGRAM
     Dosage: 50 ML, 1 DOSE, INTRAVENOUS
     Route: 042
     Dates: start: 20051018, end: 20051018

REACTIONS (2)
  - ANAPHYLACTIC SHOCK [None]
  - CARDIAC ARREST [None]
